FAERS Safety Report 10954264 (Version 1)
Quarter: 2015Q1

REPORT INFORMATION
  Report Type: Spontaneous
  Country: IT (occurrence: ES)
  Receive Date: 20150325
  Receipt Date: 20150325
  Transmission Date: 20150721
  Serious: Yes (Other)
  Sender: FDA-Public Use
  Company Number: IT-WATSON-2015-06445

PATIENT
  Age: 66 Year
  Sex: Male

DRUGS (4)
  1. ATORVASTATIN [Concomitant]
     Active Substance: ATORVASTATIN
     Indication: PRODUCT USED FOR UNKNOWN INDICATION
     Dosage: UNK
     Route: 065
     Dates: start: 20020111
  2. RAPAFLO [Suspect]
     Active Substance: SILODOSIN
     Indication: BENIGN PROSTATIC HYPERPLASIA
     Dosage: UNK
     Route: 048
     Dates: start: 20141201, end: 201501
  3. CICLOPIROX. [Concomitant]
     Active Substance: CICLOPIROX
     Indication: PRODUCT USED FOR UNKNOWN INDICATION
     Dosage: UNK
     Route: 065
     Dates: start: 20010206
  4. DICLOFENAC [Concomitant]
     Active Substance: DICLOFENAC
     Indication: PRODUCT USED FOR UNKNOWN INDICATION
     Dosage: UNK
     Route: 065
     Dates: start: 20131220

REACTIONS (2)
  - Sperm concentration decreased [Recovered/Resolved]
  - Libido decreased [Recovered/Resolved]

NARRATIVE: CASE EVENT DATE: 201501
